FAERS Safety Report 5985889-7 (Version None)
Quarter: 2008Q4

REPORT INFORMATION
  Report Type: 
  Country: None (occurrence: None)
  Receive Date: 20081203
  Receipt Date: 20081118
  Transmission Date: 20090506
  Serious: Yes (Hospitalization)
  Sender: FDA-Public Use
  Company Number: 8039703

PATIENT
  Age: 57 Year
  Sex: Female
  Weight: 61.36 kg

DRUGS (3)
  1. CIMZIA [Suspect]
     Indication: CROHN'S DISEASE
     Dosage: 400 MG 2/W SC
     Route: 058
     Dates: start: 20080723
  2. CIMZIA [Suspect]
     Indication: CROHN'S DISEASE
     Dosage: 400 MG/M SC
     Route: 058
     Dates: start: 20080915
  3. LIALDA [Concomitant]

REACTIONS (9)
  - ANAEMIA [None]
  - ANOREXIA [None]
  - CLOSTRIDIAL INFECTION [None]
  - DEHYDRATION [None]
  - GASTROINTESTINAL INFLAMMATION [None]
  - LARGE INTESTINAL ULCER [None]
  - MOUTH ULCERATION [None]
  - RECTAL ABSCESS [None]
  - WEIGHT DECREASED [None]
